FAERS Safety Report 16749676 (Version 1)
Quarter: 2019Q3

REPORT INFORMATION
  Report Type: Spontaneous
  Country: US (occurrence: US)
  Receive Date: 20190710
  Receipt Date: 20190710
  Transmission Date: 20191005
  Serious: Yes (Other)
  Sender: FDA-Public Use
  Company Number: None

PATIENT
  Age: 78 Year
  Sex: Male

DRUGS (2)
  1. WARFARIN 5MG [Suspect]
     Active Substance: WARFARIN
     Route: 048
     Dates: start: 20190520
  2. WARFARIN 2.5MG [Suspect]
     Active Substance: WARFARIN
     Route: 048
     Dates: start: 20190520

REACTIONS (1)
  - International normalised ratio fluctuation [None]
